FAERS Safety Report 19677062 (Version 1)
Quarter: 2021Q3

REPORT INFORMATION
  Report Type: Spontaneous
  Country: US (occurrence: US)
  Receive Date: 20210810
  Receipt Date: 20210810
  Transmission Date: 20211014
  Serious: No
  Sender: FDA-Public Use
  Company Number: US-TEVA-2021-US-1937006

PATIENT

DRUGS (3)
  1. AJOVY [Interacting]
     Active Substance: FREMANEZUMAB-VFRM
  2. AJOVY [Suspect]
     Active Substance: FREMANEZUMAB-VFRM
     Dosage: SECOND QUARTERLY DOSE IN THE LAST FEW WEEKS
     Route: 065
  3. ALCOHOL. [Interacting]
     Active Substance: ALCOHOL
     Route: 065

REACTIONS (4)
  - Alcohol interaction [Unknown]
  - Throat tightness [Unknown]
  - Flushing [Unknown]
  - Swelling face [Unknown]
